FAERS Safety Report 9511580 (Version 1)
Quarter: 2013Q3

REPORT INFORMATION
  Report Type: Spontaneous
  Country: CH (occurrence: None)
  Receive Date: 20130906
  Receipt Date: 20130906
  Transmission Date: 20140515
  Serious: Yes (Other)
  Sender: FDA-Public Use
  Company Number: 20130477

PATIENT
  Sex: Female

DRUGS (2)
  1. FERINJECT [Suspect]
     Indication: ANAEMIA
     Dosage: 1000 MG, 1 IN 1 D, INTRAVENOUS DRIP
     Route: 041
     Dates: start: 2013
  2. FERINJECT [Suspect]
     Indication: MALABSORPTION
     Dosage: 1000 MG, 1 IN 1 D, INTRAVENOUS DRIP
     Route: 041
     Dates: start: 2013

REACTIONS (6)
  - Extravasation [None]
  - Injection site pain [None]
  - Oedema [None]
  - Erythema [None]
  - Lymphadenopathy [None]
  - Skin discolouration [None]
